FAERS Safety Report 14158431 (Version 1)
Quarter: 2017Q4

REPORT INFORMATION
  Report Type: Report from Study
  Country: US (occurrence: US)
  Receive Date: 20171103
  Receipt Date: 20171103
  Transmission Date: 20180321
  Serious: Yes (Other)
  Sender: FDA-Public Use
  Company Number: US-ARIAD-2014US004157

PATIENT

DRUGS (4)
  1. ICLUSIG [Suspect]
     Active Substance: PONATINIB
     Dosage: 30 MG, QD
     Route: 048
     Dates: start: 201307
  2. ICLUSIG [Suspect]
     Active Substance: PONATINIB
     Dosage: 45 MG, QD
     Route: 048
  3. ICLUSIG [Suspect]
     Active Substance: PONATINIB
     Indication: CHRONIC MYELOID LEUKAEMIA
     Dosage: 45 MG, QD
     Dates: start: 20130522
  4. AMOXICILLIN. [Concomitant]
     Active Substance: AMOXICILLIN
     Indication: PRODUCT USED FOR UNKNOWN INDICATION

REACTIONS (14)
  - Pancytopenia [Recovered/Resolved]
  - Performance status decreased [Unknown]
  - Bone pain [Unknown]
  - Decreased appetite [Unknown]
  - Fatigue [Unknown]
  - Chronic myeloid leukaemia recurrent [Unknown]
  - Therapy partial responder [Unknown]
  - White blood cell count increased [Unknown]
  - Anaemia [Unknown]
  - Drug dose omission [Unknown]
  - Weight decreased [Unknown]
  - Depression [Unknown]
  - Treatment noncompliance [Unknown]
  - Respiratory tract infection [Recovered/Resolved]

NARRATIVE: CASE EVENT DATE: 2013
